APPROVED DRUG PRODUCT: APIXABAN
Active Ingredient: APIXABAN
Strength: 2.5MG
Dosage Form/Route: TABLET;ORAL
Application: A210152 | Product #001
Applicant: BIONPHARMA INC
Approved: Apr 8, 2020 | RLD: No | RS: No | Type: DISCN